FAERS Safety Report 16314474 (Version 4)
Quarter: 2019Q4

REPORT INFORMATION
  Report Type: Spontaneous
  Country: US (occurrence: US)
  Receive Date: 20190515
  Receipt Date: 20191025
  Transmission Date: 20200122
  Serious: No
  Sender: FDA-Public Use
  Company Number: US-PFIZER INC-2019199731

PATIENT
  Sex: Male

DRUGS (2)
  1. THROMBIN-JMI [Suspect]
     Active Substance: THROMBIN
     Dosage: UNK
  2. GEL-FLOW NT [Suspect]
     Active Substance: DEVICE
     Dosage: UNK

REACTIONS (2)
  - Syringe issue [Unknown]
  - Skin laceration [Unknown]
